FAERS Safety Report 18353552 (Version 2)
Quarter: 2020Q4

REPORT INFORMATION
  Report Type: Spontaneous
  Country: JP (occurrence: JP)
  Receive Date: 20201007
  Receipt Date: 20201012
  Transmission Date: 20210114
  Serious: Yes (Other)
  Sender: FDA-Public Use
  Company Number: JP-ROCHE-2686788

PATIENT
  Sex: Female

DRUGS (2)
  1. ROZLYTREK [Suspect]
     Active Substance: ENTRECTINIB
     Dosage: DOSAGE INTERVAL WAS UNCERTAIN.
     Route: 048
     Dates: start: 20200929
  2. ROZLYTREK [Suspect]
     Active Substance: ENTRECTINIB
     Indication: NON-SMALL CELL LUNG CANCER
     Dosage: DOSAGE WAS UNCERTAIN
     Route: 048

REACTIONS (1)
  - Renal impairment [Recovered/Resolved]
